FAERS Safety Report 5338861-4 (Version None)
Quarter: 2007Q2

REPORT INFORMATION
  Report Type: 
  Country: None (occurrence: None)
  Receive Date: 20070530
  Receipt Date: 20070521
  Transmission Date: 20071010
  Serious: Yes (Other)
  Sender: FDA-Public Use
  Company Number: US-ELI_LILLY_AND_COMPANY-US200705000966

PATIENT
  Age: 83 Year
  Sex: Male

DRUGS (5)
  1. CYMBALTA [Suspect]
     Indication: DEPRESSION
     Dosage: 30 MG, UNK
     Dates: start: 20070403, end: 20070411
  2. CYMBALTA [Suspect]
     Dosage: 60 MG, UNK
     Dates: start: 20070412, end: 20070420
  3. COUMADIN [Concomitant]
     Dosage: 3 MG, QOD
     Dates: end: 20070410
  4. COUMADIN [Concomitant]
     Dosage: 4 MG, QOD
     Dates: end: 20070410
  5. COUMADIN [Concomitant]
     Dosage: 3 MG, UNK
     Dates: start: 20070412

REACTIONS (1)
  - INTERNATIONAL NORMALISED RATIO INCREASED [None]
